FAERS Safety Report 21366979 (Version 1)
Quarter: 2022Q3

REPORT INFORMATION
  Report Type: Spontaneous
  Country: US (occurrence: US)
  Receive Date: 20220923
  Receipt Date: 20220923
  Transmission Date: 20221027
  Serious: No
  Sender: FDA-Public Use
  Company Number: US-SA-SAC20220916001868

PATIENT
  Sex: Female
  Weight: 76 kg

DRUGS (11)
  1. DUPIXENT [Suspect]
     Active Substance: DUPILUMAB
     Indication: Asthma
     Dosage: 300 MG QOW
     Route: 058
     Dates: start: 20191014
  2. ZILEUTON [Concomitant]
     Active Substance: ZILEUTON
  3. EPINEPHRINE [Concomitant]
     Active Substance: EPINEPHRINE
  4. PROBIOTIC ACIDOPHILUS [LACTOBACILLUS ACIDOPHILUS] [Concomitant]
  5. ZYRTEC [Concomitant]
     Active Substance: CETIRIZINE HYDROCHLORIDE
  6. VITAMIN D NOS [Concomitant]
     Active Substance: VITAMIN D NOS
  7. VENTOLIN HFA [Concomitant]
     Active Substance: ALBUTEROL SULFATE
  8. ADVAIR HFA [Concomitant]
     Active Substance: FLUTICASONE PROPIONATE\SALMETEROL XINAFOATE
  9. TEZSPIRE [Concomitant]
     Active Substance: TEZEPELUMAB-EKKO
  10. MAGNESIUM [Concomitant]
     Active Substance: MAGNESIUM
  11. COVID-19 VACCINE [Concomitant]

REACTIONS (4)
  - Eye pruritus [Unknown]
  - Dry eye [Unknown]
  - Hypersensitivity [Unknown]
  - Intentional dose omission [Unknown]
